FAERS Safety Report 6609034-X (Version None)
Quarter: 2010Q1

REPORT INFORMATION
  Report Type: 
  Country: None (occurrence: None)
  Receive Date: 20100301
  Receipt Date: 20100218
  Transmission Date: 20100710
  Serious: Yes (Death)
  Sender: FDA-Public Use
  Company Number: US-ELI_LILLY_AND_COMPANY-US201002005564

PATIENT
  Age: 25 Year
  Sex: Female

DRUGS (7)
  1. OLANZAPINE [Suspect]
  2. ETHANOL [Concomitant]
  3. BUPROPION HCL [Concomitant]
  4. BENZODIAZEPINE DERIVATIVES [Concomitant]
  5. SERTRALINE HCL [Concomitant]
  6. ACETAMINOPHEN AND HYDROCODONE BITARTRATE [Concomitant]
  7. TOPIRAMATE [Concomitant]

REACTIONS (1)
  - DEATH [None]
